FAERS Safety Report 4715819-7 (Version None)
Quarter: 2005Q3

REPORT INFORMATION
  Report Type: 
  Country: None (occurrence: None)
  Receive Date: 20050713
  Receipt Date: 20050705
  Transmission Date: 20060218
  Serious: Yes (Other)
  Sender: FDA-Public Use
  Company Number: US-2005-012681

PATIENT
  Age: 76 Year
  Sex: Male

DRUGS (4)
  1. CAMPATH [Suspect]
     Dosage: SEE IMGAE
     Dates: start: 20050101, end: 20050401
  2. CAMPATH [Suspect]
     Dosage: SEE IMGAE
     Dates: start: 20050501
  3. PROSCAR [Concomitant]
  4. ACYCLOVIR [Concomitant]

REACTIONS (2)
  - NEUTROPENIA [None]
  - WHITE BLOOD CELL COUNT INCREASED [None]
